FAERS Safety Report 6975244-5 (Version None)
Quarter: 2010Q3

REPORT INFORMATION
  Report Type: 
  Country: None (occurrence: None)
  Receive Date: 20100910
  Receipt Date: 20090217
  Transmission Date: 20110219
  Serious: No
  Sender: FDA-Public Use
  Company Number: US-WYE-H08251709

PATIENT
  Sex: Female
  Weight: 56.75 kg

DRUGS (5)
  1. PRISTIQ [Suspect]
     Indication: ANXIETY
     Route: 048
     Dates: start: 20090201
  2. PRISTIQ [Suspect]
     Indication: PANIC ATTACK
  3. XANAX [Concomitant]
  4. REGULAR INSULIN [Concomitant]
  5. LEXAPRO [Suspect]
     Dosage: UNSPECIFIED
     Route: 065
     Dates: end: 20090201

REACTIONS (8)
  - ANXIETY [None]
  - CONDITION AGGRAVATED [None]
  - DIZZINESS [None]
  - HEADACHE [None]
  - NASOPHARYNGITIS [None]
  - PANIC ATTACK [None]
  - TREMOR [None]
  - WEIGHT DECREASED [None]
